FAERS Safety Report 4647572-X (Version None)
Quarter: 2005Q2

REPORT INFORMATION
  Report Type: 
  Country: None (occurrence: None)
  Receive Date: 20050426
  Receipt Date: 20050411
  Transmission Date: 20051028
  Serious: No
  Sender: FDA-Public Use
  Company Number: UKP05000095

PATIENT
  Age: 52 Year
  Sex: Female
  Weight: 60 kg

DRUGS (7)
  1. ACTONEL [Suspect]
     Indication: OSTEOPOROSIS
     Dosage: 35 MG, 1/WEEK, ORAL
     Route: 048
     Dates: start: 20041201, end: 20050201
  2. OMEPRAZOLE [Concomitant]
  3. SERETIDE EVOHALER (SALMETEROL XINAFOATE FLUTICASONE PROPIONATE) [Concomitant]
  4. LIVIAL [Concomitant]
  5. TETRACYCLINE [Concomitant]
  6. ACETAMINOPHEN [Concomitant]
  7. RENNIE (MAGNESIUM CARBONATE, CALCIUM CARBONATE) [Concomitant]

REACTIONS (19)
  - ABDOMINAL DISCOMFORT [None]
  - ABDOMINAL PAIN [None]
  - ARTHRALGIA [None]
  - BLOOD BLISTER [None]
  - BONE PAIN [None]
  - CHEST PAIN [None]
  - ERUCTATION [None]
  - GASTROINTESTINAL DISORDER [None]
  - GASTROINTESTINAL HAEMORRHAGE [None]
  - MUSCULOSKELETAL PAIN [None]
  - OESOPHAGEAL DISCOMFORT [None]
  - OESOPHAGITIS [None]
  - ORAL MUCOSAL BLISTERING [None]
  - PAIN [None]
  - PAIN IN EXTREMITY [None]
  - SHOULDER PAIN [None]
  - THROAT IRRITATION [None]
  - THROMBOSIS [None]
  - TRACHEITIS [None]
